FAERS Safety Report 6130688-9 (Version None)
Quarter: 2009Q1

REPORT INFORMATION
  Report Type: 
  Country: None (occurrence: None)
  Receive Date: 20090325
  Receipt Date: 20090323
  Transmission Date: 20090719
  Serious: No
  Sender: FDA-Public Use
  Company Number: US-JNJFOC-20090305900

PATIENT
  Sex: Female
  Weight: 67.13 kg

DRUGS (6)
  1. FENTANYL TRANSDERMAL SYSTEM [Suspect]
     Indication: INTERVERTEBRAL DISC DEGENERATION
     Route: 062
  2. INDERAL [Concomitant]
     Indication: CARDIAC DISORDER
     Route: 048
  3. HYDROCHLOROTHIAZIDE [Concomitant]
     Indication: HYPERTENSION
     Route: 048
  4. LIPITOR [Concomitant]
     Indication: HYPERCHOLESTEROLAEMIA
     Route: 048
  5. FEXOFENADINE [Concomitant]
     Indication: SEASONAL ALLERGY
     Route: 048
  6. HYDROCODONE BITARTRATE [Concomitant]
     Indication: PAIN
     Dosage: 7.5/750MG/TABLET/1 EVERY 12 HOURS AS NEEDED
     Route: 048

REACTIONS (2)
  - APPLICATION SITE RASH [None]
  - TREATMENT NONCOMPLIANCE [None]
